FAERS Safety Report 9773521 (Version 4)
Quarter: 2014Q1

REPORT INFORMATION
  Report Type: Spontaneous
  Country: US (occurrence: US)
  Receive Date: 20131219
  Receipt Date: 20140321
  Transmission Date: 20141002
  Serious: Yes (Hospitalization)
  Sender: FDA-Public Use
  Company Number: US-TARO-2013P1022005

PATIENT
  Age: 22 Year
  Sex: Female
  Weight: 156.95 kg

DRUGS (1)
  1. PLACEBO [Suspect]
     Indication: ACNE
     Route: 061
     Dates: start: 20131015

REACTIONS (1)
  - Dyspnoea [Recovered/Resolved]
